FAERS Safety Report 16365027 (Version 1)
Quarter: 2019Q2

REPORT INFORMATION
  Report Type: Spontaneous
  Country: JP (occurrence: JP)
  Receive Date: 20190529
  Receipt Date: 20190529
  Transmission Date: 20190711
  Serious: Yes (Hospitalization, Other)
  Sender: FDA-Public Use
  Company Number: JP-LUPIN PHARMACEUTICALS INC.-2019-03221

PATIENT
  Age: 82 Year
  Sex: Female
  Weight: 51.6 kg

DRUGS (7)
  1. RIFAMPIN. [Suspect]
     Active Substance: RIFAMPIN
     Dosage: 450 MILLIGRAM, QD (9 MG / KG) (RESUMED)
     Route: 048
  2. CLARITHROMYCIN. [Suspect]
     Active Substance: CLARITHROMYCIN
     Indication: MYCOBACTERIAL INFECTION
     Dosage: 800 MILLIGRAM, QD
     Route: 065
  3. ERYTHROMYCIN. [Suspect]
     Active Substance: ERYTHROMYCIN
     Indication: MYCOBACTERIAL INFECTION
     Dosage: 200 MILLIGRAM, QD
     Route: 065
  4. ETHAMBUTOL [Suspect]
     Active Substance: ETHAMBUTOL HYDROCHLORIDE
     Indication: MYCOBACTERIAL INFECTION
     Dosage: 750 MILLIGRAM, QD
     Route: 065
  5. ETHAMBUTOL [Suspect]
     Active Substance: ETHAMBUTOL HYDROCHLORIDE
     Dosage: 750 MILLIGRAM, QD (15 MG / KG) (RESUMED)
     Route: 048
  6. RIFAMPIN. [Suspect]
     Active Substance: RIFAMPIN
     Indication: MYCOBACTERIAL INFECTION
     Dosage: 600 MILLIGRAM, QD
     Route: 065
  7. CLARITHROMYCIN. [Suspect]
     Active Substance: CLARITHROMYCIN
     Dosage: 600 MILLIGRAM, QD (12 MG / KG) (RESUMED)
     Route: 048

REACTIONS (1)
  - Pneumothorax [Recovering/Resolving]
